FAERS Safety Report 11296008 (Version 1)
Quarter: 2015Q3

REPORT INFORMATION
  Report Type: Spontaneous
  Country: US (occurrence: US)
  Receive Date: 20150722
  Receipt Date: 20150722
  Transmission Date: 20151125
  Serious: No
  Sender: FDA-Public Use
  Company Number: US-ELI_LILLY_AND_COMPANY-US200912005126

PATIENT
  Sex: Female

DRUGS (3)
  1. EVISTA [Suspect]
     Active Substance: RALOXIFENE HYDROCHLORIDE
     Indication: OSTEOPOROSIS
     Dosage: UNK, UNKNOWN
     Route: 065
  2. ACTONEL [Concomitant]
     Active Substance: RISEDRONATE SODIUM
     Dosage: UNK, UNKNOWN
     Route: 065
  3. RECLAST [Concomitant]
     Active Substance: ZOLEDRONIC ACID
     Dosage: UNK, UNKNOWN
     Route: 065

REACTIONS (10)
  - Abdominal pain upper [Unknown]
  - Abdominal discomfort [Unknown]
  - Headache [Unknown]
  - Gastric disorder [Unknown]
  - Chills [Unknown]
  - Diarrhoea [Unknown]
  - Drug ineffective [Unknown]
  - Feeling hot [Unknown]
  - Fatigue [Unknown]
  - Decreased appetite [Unknown]
